FAERS Safety Report 6841547-8 (Version None)
Quarter: 2010Q3

REPORT INFORMATION
  Report Type: 
  Country: None (occurrence: None)
  Receive Date: 20100714
  Receipt Date: 20100630
  Transmission Date: 20110219
  Serious: Yes (Other)
  Sender: FDA-Public Use
  Company Number: JP-PFIZER INC-2010052396

PATIENT
  Age: 39 Year
  Sex: Male

DRUGS (4)
  1. ADRIACIN [Suspect]
     Indication: HODGKIN'S DISEASE
     Dosage: 40 MG
  2. VINBLASTINE SULFATE [Suspect]
     Indication: HODGKIN'S DISEASE
     Dosage: 10 MG,
  3. BLEO [Suspect]
     Indication: HODGKIN'S DISEASE
     Dosage: 15 MG, UNK
  4. DACARBAZINE [Suspect]
     Indication: HODGKIN'S DISEASE
     Dosage: 400 MG, UNK

REACTIONS (1)
  - FRONTOTEMPORAL DEMENTIA [None]
